FAERS Safety Report 23986661 (Version 1)
Quarter: 2024Q2

REPORT INFORMATION
  Report Type: Spontaneous
  Country: US (occurrence: None)
  Receive Date: 20240617
  Receipt Date: 20240617
  Transmission Date: 20240716
  Serious: No
  Sender: FDA-Public Use
  Company Number: None

PATIENT
  Age: 58 Year
  Sex: Female
  Weight: 101.25 kg

DRUGS (1)
  1. ZEPBOUND [Suspect]
     Active Substance: TIRZEPATIDE
     Indication: Weight decreased
     Dates: start: 20240308

REACTIONS (4)
  - Injection site rash [None]
  - Vomiting [None]
  - Diarrhoea [None]
  - Condition aggravated [None]

NARRATIVE: CASE EVENT DATE: 20240601
